FAERS Safety Report 10135939 (Version 1)
Quarter: 2014Q2

REPORT INFORMATION
  Report Type: Report from Study
  Country: CA (occurrence: CA)
  Receive Date: 20140429
  Receipt Date: 20140429
  Transmission Date: 20141212
  Serious: Yes (Hospitalization)
  Sender: FDA-Public Use
  Company Number: CA-ABBVIE-14K-028-1229949-00

PATIENT
  Sex: Male
  Weight: 93.07 kg

DRUGS (1)
  1. LUPRON DEPOT [Suspect]
     Indication: PROSTATE CANCER
     Route: 030
     Dates: start: 2002

REACTIONS (4)
  - Muscle disorder [Unknown]
  - Dizziness [Unknown]
  - Asthenia [Unknown]
  - Skin ulcer [Recovered/Resolved]
